FAERS Safety Report 8028817-5 (Version None)
Quarter: 2012Q1

REPORT INFORMATION
  Report Type: 
  Country: None (occurrence: None)
  Receive Date: 20120106
  Receipt Date: 20111207
  Transmission Date: 20120608
  Serious: Yes (Hospitalization)
  Sender: FDA-Public Use
  Company Number: SE-PFIZER INC-K201100236

PATIENT
  Sex: Male

DRUGS (14)
  1. ALTACE [Suspect]
     Dosage: 10 MG, UNKNOWN
     Route: 048
     Dates: end: 20100711
  2. LEVOTHYROXINE SODIUM [Concomitant]
     Dosage: UNK
     Dates: start: 20100501
  3. PROSCAR [Concomitant]
     Dosage: UNK
     Dates: start: 20100111
  4. HYDROXOCOBALAMIN [Concomitant]
     Dosage: UNK
  5. METFORMIN [Concomitant]
     Dosage: UNK
     Dates: end: 20100712
  6. IMDUR [Concomitant]
     Dosage: UNK
  7. BISOPROLOL [Concomitant]
     Dosage: UNK
  8. FUROSEMIDE [Suspect]
     Dosage: 40 MG, UNKNOWN
     Dates: end: 20100713
  9. DOXAZOSIN MESYLATE [Concomitant]
     Dosage: UNK
     Dates: start: 20100601
  10. WARFARIN SODIUM [Concomitant]
     Dosage: UNK
  11. SERENOA REPENS [Concomitant]
     Dosage: UNK
  12. AMIODARONE HCL [Suspect]
     Indication: VENTRICULAR ARRHYTHMIA
     Dosage: LOADING DOSE OF 600 MG DAILY FOR 10 DAYS THEN 200 MG
     Route: 048
     Dates: start: 20091208, end: 20091217
  13. SIMVASTATIN [Concomitant]
     Dosage: UNK
  14. NITROMEX [Concomitant]
     Dosage: UNK

REACTIONS (3)
  - RENAL FAILURE ACUTE [None]
  - DEHYDRATION [None]
  - VENTRICULAR TACHYCARDIA [None]
